FAERS Safety Report 7593876-0 (Version None)
Quarter: 2011Q3

REPORT INFORMATION
  Report Type: 
  Country: None (occurrence: None)
  Receive Date: 20110706
  Receipt Date: 20110630
  Transmission Date: 20111222
  Serious: Yes (Other)
  Sender: FDA-Public Use
  Company Number: PHHY2011FR58543

PATIENT
  Sex: Female

DRUGS (2)
  1. FOLIC ACID [Concomitant]
     Dosage: 5 MG, QD
     Dates: start: 20110201
  2. TEGRETOL [Suspect]
     Indication: EPILEPSY
     Dosage: 600 MG, QD
     Route: 048

REACTIONS (2)
  - MATERNAL EXPOSURE DURING PREGNANCY [None]
  - ALPHA 1 FOETOPROTEIN INCREASED [None]
